FAERS Safety Report 8901230 (Version 1)
Quarter: 2012Q4

REPORT INFORMATION
  Report Type: Report from Study
  Country: JP (occurrence: JP)
  Receive Date: 20121109
  Receipt Date: 20121109
  Transmission Date: 20130627
  Serious: Yes (Hospitalization)
  Sender: FDA-Public Use
  Company Number: JP-VERTEX PHARMACEUTICAL INC.-AE-2012-005417

PATIENT
  Age: 33 Year
  Sex: Male

DRUGS (6)
  1. VX-950 (TELAPREVIR) [Suspect]
     Indication: CHRONIC HEPATITIS C
     Dosage: 2250 mg, qd
     Route: 048
     Dates: start: 20120214, end: 20120307
  2. VX-950 (TELAPREVIR) [Suspect]
     Dosage: 2250 mg, qd
     Route: 048
     Dates: start: 20120322, end: 20120508
  3. PEGINTERFERON ALFA-2B [Suspect]
     Indication: CHRONIC HEPATITIS C
     Dosage: 1.5 ?g/kg, qw
     Route: 058
     Dates: start: 20120214, end: 20120307
  4. PEGINTERFERON ALFA-2B [Suspect]
     Dosage: 1.5 ?g/kg,qw
     Route: 058
     Dates: start: 20120322
  5. RIBAVIRIN [Suspect]
     Indication: CHRONIC HEPATITIS C
     Dosage: 800 mg, qd
     Route: 048
     Dates: start: 20120214, end: 20120307
  6. RIBAVIRIN [Suspect]
     Dosage: 800 mg, qd
     Route: 048
     Dates: start: 20120322

REACTIONS (3)
  - Psychiatric symptom [Recovered/Resolved]
  - Rash [None]
  - Pruritus generalised [None]
